FAERS Safety Report 5530066-7 (Version None)
Quarter: 2007Q4

REPORT INFORMATION
  Report Type: 
  Country: None (occurrence: None)
  Receive Date: 20071119
  Receipt Date: 20071011
  Transmission Date: 20080405
  Serious: No
  Sender: FDA-Public Use
  Company Number: TPA2007A02089

PATIENT
  Age: 69 Year
  Sex: Male
  Weight: 87.0906 kg

DRUGS (6)
  1. ROZEREM [Suspect]
     Indication: MIDDLE INSOMNIA
     Dosage: 8 MG, HS; AS REQUIRED, PER ORAL
     Route: 048
     Dates: start: 20071003
  2. VERAPAMIL [Concomitant]
  3. DIGOXIN [Concomitant]
  4. TRICOR [Concomitant]
  5. SIMVASTATIN [Concomitant]
  6. ACIPHEX [Concomitant]

REACTIONS (1)
  - BLOOD GLUCOSE INCREASED [None]
